FAERS Safety Report 13886399 (Version 1)
Quarter: 2017Q3

REPORT INFORMATION
  Report Type: Spontaneous
  Country: US (occurrence: US)
  Receive Date: 20170821
  Receipt Date: 20170821
  Transmission Date: 20171127
  Serious: Yes (Life-Threatening)
  Sender: FDA-Public Use
  Company Number: US-SWEDISH ORPHAN INTERNATIONAL AB-2016US0512

PATIENT
  Age: 89 Year
  Sex: Female
  Weight: 45.4 kg

DRUGS (2)
  1. KINERET [Suspect]
     Active Substance: ANAKINRA
     Indication: JUVENILE IDIOPATHIC ARTHRITIS
     Route: 058
     Dates: start: 20160515, end: 20160705
  2. KINERET [Suspect]
     Active Substance: ANAKINRA
     Dosage: TAKEN EVERY OTHER DAY
     Route: 058

REACTIONS (3)
  - White blood cell count decreased [Unknown]
  - Neutropenic sepsis [Recovered/Resolved]
  - Neutropenia [Recovered/Resolved]

NARRATIVE: CASE EVENT DATE: 20160705
